FAERS Safety Report 10213844 (Version 1)
Quarter: 2014Q2

REPORT INFORMATION
  Report Type: Spontaneous
  Country: US (occurrence: None)
  Receive Date: 20140602
  Receipt Date: 20140602
  Transmission Date: 20141212
  Serious: Yes (Disabling)
  Sender: FDA-Public Use
  Company Number: None

PATIENT
  Age: 57 Year
  Sex: Female
  Weight: 68.04 kg

DRUGS (2)
  1. CYMBALTA [Suspect]
     Indication: VIITH NERVE PARALYSIS
     Dosage: 1PILL ?ONCE DAILY?TAKEN BY MOUTH
     Route: 048
     Dates: start: 20140401, end: 20140523
  2. CYMBALTA [Suspect]
     Indication: PAIN
     Dosage: 1PILL ?ONCE DAILY?TAKEN BY MOUTH
     Route: 048
     Dates: start: 20140401, end: 20140523

REACTIONS (18)
  - Paraesthesia [None]
  - Hypoaesthesia [None]
  - Paraesthesia [None]
  - Blood pressure increased [None]
  - Night sweats [None]
  - Disturbance in attention [None]
  - Abnormal dreams [None]
  - Crying [None]
  - Anger [None]
  - Myalgia [None]
  - Fatigue [None]
  - Nausea [None]
  - Insomnia [None]
  - Headache [None]
  - Paraesthesia [None]
  - Palpitations [None]
  - Withdrawal syndrome [None]
  - Therapy cessation [None]
